FAERS Safety Report 8243074-2 (Version None)
Quarter: 2012Q1

REPORT INFORMATION
  Report Type: 
  Country: None (occurrence: None)
  Receive Date: 20120314
  Receipt Date: 20100713
  Transmission Date: 20120608
  Serious: Yes (Hospitalization)
  Sender: FDA-Public Use
  Company Number: PHHY2010US46091

PATIENT
  Sex: Female

DRUGS (2)
  1. FANAPT [Suspect]
     Indication: PSYCHOTIC DISORDER
  2. HALDOL [Suspect]
     Indication: PSYCHOTIC DISORDER
     Dosage: 3 MG, QD, ORAL
     Route: 048

REACTIONS (2)
  - PSYCHOTIC DISORDER [None]
  - AGGRESSION [None]
